FAERS Safety Report 5676246-1 (Version None)
Quarter: 2008Q1

REPORT INFORMATION
  Report Type: 
  Country: None (occurrence: None)
  Receive Date: 20080321
  Receipt Date: 20080312
  Transmission Date: 20080703
  Serious: Yes (Hospitalization)
  Sender: FDA-Public Use
  Company Number: US-AMGEN-STX266586

PATIENT
  Sex: Female

DRUGS (2)
  1. ENBREL [Suspect]
     Indication: POLYMYALGIA RHEUMATICA
     Route: 058
     Dates: start: 20030515
  2. METHOTREXATE [Concomitant]
     Route: 048
     Dates: start: 19970101

REACTIONS (3)
  - ABDOMINAL WALL INFECTION [None]
  - ESCHERICHIA INFECTION [None]
  - RECTAL POLYP [None]
